FAERS Safety Report 15781183 (Version 1)
Quarter: 2019Q1

REPORT INFORMATION
  Report Type: Report from Study
  Country: DO (occurrence: DO)
  Receive Date: 20190102
  Receipt Date: 20190102
  Transmission Date: 20190417
  Serious: Yes (Other)
  Sender: FDA-Public Use
  Company Number: DO-SA-2018SA396906

PATIENT
  Age: 63 Year
  Sex: Female

DRUGS (1)
  1. INSULIN GLARGINE [Suspect]
     Active Substance: INSULIN GLARGINE
     Dosage: 20 IU IN THE MORNING AND 20 IU AT NIGTH, BID
     Route: 058
     Dates: start: 2015

REACTIONS (2)
  - Cardiac operation [Unknown]
  - Off label use [Unknown]
